FAERS Safety Report 10412265 (Version 1)
Quarter: 2014Q3

REPORT INFORMATION
  Report Type: Spontaneous
  Country: US (occurrence: US)
  Receive Date: 20140827
  Receipt Date: 20140827
  Transmission Date: 20150326
  Serious: Yes (Hospitalization)
  Sender: FDA-Public Use
  Company Number: US-SA-2014SA112595

PATIENT
  Age: 59 Year
  Sex: Male

DRUGS (6)
  1. SOLOSTAR [Concomitant]
     Active Substance: DEVICE
     Indication: TYPE 2 DIABETES MELLITUS
     Dates: start: 2012
  2. SOLOSTAR [Concomitant]
     Active Substance: DEVICE
     Indication: TYPE 2 DIABETES MELLITUS
     Dosage: HER HUSBAND^S DOCTOR HAD HIM TO INCREASE THE LANTUS SOLOSTAR DOSE INCREASE BY ONE UNIT INCREMENTS.
  3. NOVOLOG [Concomitant]
     Active Substance: INSULIN ASPART
  4. LANTUS SOLOSTAR [Suspect]
     Active Substance: INSULIN GLARGINE
     Indication: TYPE 2 DIABETES MELLITUS
     Dosage: HER HUSBAND^S DOCTOR HAD HIM TO INCREASE THE LANTUS SOLOSTAR DOSE INCREASE BY ONE UNIT INCREMENTS.
     Route: 065
  5. LANTUS SOLOSTAR [Suspect]
     Active Substance: INSULIN GLARGINE
     Indication: TYPE 2 DIABETES MELLITUS
     Dosage: DOSE:55 UNIT(S)
     Route: 065
     Dates: start: 2012
  6. ANTIBIOTICS [Concomitant]
     Active Substance: UNSPECIFIED INGREDIENT

REACTIONS (7)
  - Dyspnoea [Unknown]
  - Tremor [Unknown]
  - Hyperhidrosis [Unknown]
  - Urticaria [Unknown]
  - Pyrexia [Unknown]
  - Cardiac operation [Unknown]
  - Peripheral coldness [Unknown]

NARRATIVE: CASE EVENT DATE: 201303
